FAERS Safety Report 12691289 (Version 1)
Quarter: 2016Q3

REPORT INFORMATION
  Report Type: Report from Study
  Country: US (occurrence: US)
  Receive Date: 20160826
  Receipt Date: 20160826
  Transmission Date: 20161109
  Serious: Yes (Hospitalization)
  Sender: FDA-Public Use
  Company Number: US-VALIDUS PHARMACEUTICALS LLC-US-2011VAL000449

PATIENT

DRUGS (8)
  1. CALCIUM CARBONATE. [Concomitant]
     Active Substance: CALCIUM CARBONATE
     Indication: PRODUCT USED FOR UNKNOWN INDICATION
     Dosage: POST ORAL (5 ML, 3 IN 1 D)
     Route: 048
  2. CALCITRIOL. [Suspect]
     Active Substance: CALCITRIOL
     Indication: PRODUCT USED FOR UNKNOWN INDICATION
     Dosage: POST ORAL (0.25 MG,1 IN 1 D)
     Route: 048
  3. XOPENEX [Concomitant]
     Active Substance: LEVALBUTEROL HYDROCHLORIDE
     Dosage: (0.63 %,AS REQUIRED)
     Route: 065
  4. BICITRA                            /00586801/ [Concomitant]
     Indication: PRODUCT USED FOR UNKNOWN INDICATION
     Dosage: POST ORAL (5 ML,3 IN 1 D)
     Route: 048
  5. NUTROPIN AQ [Concomitant]
     Active Substance: SOMATROPIN
     Indication: CHRONIC KIDNEY DISEASE
     Dosage: (1.2 MG,7 IN 1 D)
     Route: 058
  6. PATANOL [Concomitant]
     Active Substance: OLOPATADINE HYDROCHLORIDE
     Indication: PRODUCT USED FOR UNKNOWN INDICATION
     Dosage: BOTH THE EYES (1 IN 1 D)
     Route: 047
  7. PULMICORT TURBUHALER [Concomitant]
     Active Substance: BUDESONIDE
     Indication: PRODUCT USED FOR UNKNOWN INDICATION
     Dosage: (1 IN 1 D)
     Route: 065
  8. SINGULAIR [Concomitant]
     Active Substance: MONTELUKAST SODIUM
     Indication: PRODUCT USED FOR UNKNOWN INDICATION
     Dosage: (5 MG,1 IN 1 D)
     Route: 065

REACTIONS (5)
  - Pneumonia [Unknown]
  - Creatinine urine increased [Unknown]
  - Tinea infection [Unknown]
  - Blood urea increased [Unknown]
  - Asthma [Unknown]

NARRATIVE: CASE EVENT DATE: 20110811
